FAERS Safety Report 14474680 (Version 2)
Quarter: 2018Q2

REPORT INFORMATION
  Report Type: Spontaneous
  Country: JP (occurrence: JP)
  Receive Date: 20180201
  Receipt Date: 20180409
  Transmission Date: 20180711
  Serious: Yes (Hospitalization)
  Sender: FDA-Public Use
  Company Number: JP-BAYER-2018-015274

PATIENT
  Age: 70 Year
  Sex: Female
  Weight: 33 kg

DRUGS (1)
  1. BETAFERON [Suspect]
     Active Substance: INTERFERON BETA-1B
     Indication: MULTIPLE SCLEROSIS
     Dosage: A BOTTLE EVERY OTHER DAY ADMINISTRATION
     Route: 058

REACTIONS (1)
  - Aortic valve stenosis [Recovering/Resolving]
